FAERS Safety Report 16710668 (Version 3)
Quarter: 2019Q4

REPORT INFORMATION
  Report Type: Report from Study
  Country: US (occurrence: US)
  Receive Date: 20190816
  Receipt Date: 20191021
  Transmission Date: 20200122
  Serious: Yes (Hospitalization)
  Sender: FDA-Public Use
  Company Number: US-ACTELION-A-NJ2017-158949

PATIENT
  Age: 56 Year
  Sex: Female
  Weight: 58.05 kg

DRUGS (11)
  1. UPTRAVI [Suspect]
     Active Substance: SELEXIPAG
     Dosage: 400 MCG AM/200 MCG PM
     Route: 048
  2. UPTRAVI [Suspect]
     Active Substance: SELEXIPAG
     Dosage: 600 MCG IN AM 800 MCG IN PM
     Route: 048
  3. UPTRAVI [Suspect]
     Active Substance: SELEXIPAG
     Indication: PULMONARY HYPERTENSION
     Dosage: 1000 MCG, BID
     Route: 048
  4. OPSUMIT [Suspect]
     Active Substance: MACITENTAN
     Indication: PULMONARY HYPERTENSION
     Dosage: 10 MG, QD
     Route: 048
  5. REMODULIN [Concomitant]
     Active Substance: TREPROSTINIL
     Route: 058
  6. UPTRAVI [Suspect]
     Active Substance: SELEXIPAG
     Dosage: 200 MCG, BID
     Route: 048
  7. ADEMPAS [Concomitant]
     Active Substance: RIOCIGUAT
     Indication: PRODUCT USED FOR UNKNOWN INDICATION
     Dosage: UNK
     Route: 048
     Dates: start: 20170822
  8. OPSUMIT [Suspect]
     Active Substance: MACITENTAN
     Dosage: 10 MG, QD
     Route: 048
  9. UPTRAVI [Suspect]
     Active Substance: SELEXIPAG
     Dosage: 600 MCG, BID
     Route: 048
  10. UPTRAVI [Suspect]
     Active Substance: SELEXIPAG
     Dosage: 1000 MCG IN THE MORNING AND 1200 MCG IN THE EVENING
     Route: 048
  11. UPTRAVI [Suspect]
     Active Substance: SELEXIPAG
     Dosage: 400 MCG, BID
     Route: 048

REACTIONS (34)
  - Poor quality sleep [Unknown]
  - Diuretic therapy [Unknown]
  - Epistaxis [Recovering/Resolving]
  - Decreased appetite [Unknown]
  - Hunger [Recovering/Resolving]
  - Dizziness [Recovered/Resolved]
  - Unevaluable event [Unknown]
  - Condition aggravated [Unknown]
  - Abdominal pain upper [Unknown]
  - Bronchitis [Unknown]
  - Gastric ulcer [Unknown]
  - Gastrointestinal disorder [Unknown]
  - Diarrhoea [Unknown]
  - Weight decreased [Unknown]
  - Productive cough [Unknown]
  - Peripheral swelling [Unknown]
  - Cough [Unknown]
  - Oedema peripheral [Unknown]
  - Nausea [Unknown]
  - Rash [Recovering/Resolving]
  - Catheterisation cardiac [Unknown]
  - Gastroenteritis viral [Unknown]
  - Abdominal distension [Unknown]
  - Vomiting [Unknown]
  - Drug intolerance [Unknown]
  - Headache [Unknown]
  - Flatulence [Recovering/Resolving]
  - Pyrexia [Unknown]
  - Migraine [Recovering/Resolving]
  - Fluid retention [Unknown]
  - Haemodynamic instability [Unknown]
  - Malaise [Unknown]
  - Feeding disorder [Recovering/Resolving]
  - Cardiac flutter [Unknown]

NARRATIVE: CASE EVENT DATE: 201708
